FAERS Safety Report 9218703 (Version 2)
Quarter: 2013Q2

REPORT INFORMATION
  Report Type: Spontaneous
  Country: US (occurrence: US)
  Receive Date: 20130409
  Receipt Date: 20130422
  Transmission Date: 20140414
  Serious: Yes (Hospitalization)
  Sender: FDA-Public Use
  Company Number: US-AMGEN-USASP2013023809

PATIENT
  Age: 52 Year
  Sex: Female

DRUGS (2)
  1. ENBREL [Suspect]
     Indication: PSORIATIC ARTHROPATHY
     Dosage: 50 MG, QWK
     Dates: start: 20030601, end: 20130305
  2. METHOTREXATE [Concomitant]
     Dosage: UNK

REACTIONS (6)
  - Adverse drug reaction [Recovered/Resolved]
  - Oral pain [Recovered/Resolved]
  - Tooth loss [Recovered/Resolved]
  - Diarrhoea [Recovered/Resolved]
  - Local swelling [Not Recovered/Not Resolved]
  - Musculoskeletal discomfort [Recovering/Resolving]
